FAERS Safety Report 6919888-5 (Version None)
Quarter: 2010Q3

REPORT INFORMATION
  Report Type: 
  Country: None (occurrence: None)
  Receive Date: 20100811
  Receipt Date: 20100805
  Transmission Date: 20110219
  Serious: Yes (Other)
  Sender: FDA-Public Use
  Company Number: A0874234A

PATIENT
  Age: 33 Year
  Sex: Male

DRUGS (3)
  1. LAMICTAL [Suspect]
     Indication: BIPOLAR DISORDER
     Dosage: 150MG PER DAY
     Route: 048
     Dates: start: 20080101, end: 20100101
  2. LAMOTRIGINE [Suspect]
     Indication: BIPOLAR DISORDER
     Route: 065
  3. THYROID HORMONE [Concomitant]

REACTIONS (3)
  - ARTHRALGIA [None]
  - BLOOD BILIRUBIN INCREASED [None]
  - URINE ABNORMALITY [None]
